FAERS Safety Report 22170057 (Version 1)
Quarter: 2023Q2

REPORT INFORMATION
  Report Type: Spontaneous
  Country: GF (occurrence: GF)
  Receive Date: 20230404
  Receipt Date: 20230404
  Transmission Date: 20230721
  Serious: Yes (Other)
  Sender: FDA-Public Use
  Company Number: GF-BRISTOL-MYERS SQUIBB COMPANY-2023-045992

PATIENT
  Age: 61 Year
  Sex: Male

DRUGS (1)
  1. THALIDOMIDE [Suspect]
     Active Substance: THALIDOMIDE
     Indication: Herpes simplex

REACTIONS (3)
  - Neurotoxicity [Unknown]
  - Paraesthesia [Unknown]
  - Off label use [Unknown]
